FAERS Safety Report 5157843-9 (Version None)
Quarter: 2006Q4

REPORT INFORMATION
  Report Type: 
  Country: None (occurrence: None)
  Receive Date: 20061120
  Receipt Date: 20061120
  Transmission Date: 20070319
  Serious: Yes (Hospitalization, Other)
  Sender: FDA-Public Use
  Company Number: None

PATIENT
  Age: 54 Year
  Sex: Male

DRUGS (9)
  1. OXACILLIN [Suspect]
     Indication: STAPHYLOCOCCAL INFECTION
     Dosage: 2G Q4 IV
     Route: 042
     Dates: start: 20050324, end: 20050329
  2. ASPIRIN [Concomitant]
  3. LASIX [Concomitant]
  4. K-DUR 10 [Concomitant]
  5. LOPRESSOR [Concomitant]
  6. LIPITOR [Concomitant]
  7. PREVACID [Concomitant]
  8. FOLIC ACID [Concomitant]
  9. ACCUPRIL [Concomitant]

REACTIONS (2)
  - NEPHRITIS INTERSTITIAL [None]
  - RENAL FAILURE ACUTE [None]
